FAERS Safety Report 11174919 (Version 3)
Quarter: 2015Q3

REPORT INFORMATION
  Report Type: Spontaneous
  Country: US (occurrence: US)
  Receive Date: 20150609
  Receipt Date: 20150721
  Transmission Date: 20151125
  Serious: Yes (Death)
  Sender: FDA-Public Use
  Company Number: US-PFIZER INC-2015186810

PATIENT
  Age: 55 Year
  Sex: Female
  Weight: 81 kg

DRUGS (1)
  1. IBRANCE [Suspect]
     Active Substance: PALBOCICLIB
     Indication: BRAIN NEOPLASM
     Dosage: 100 MG, DAILY
     Route: 048
     Dates: start: 20150302, end: 20150525

REACTIONS (5)
  - Anaemia [Unknown]
  - Death [Fatal]
  - Brain neoplasm [Unknown]
  - Disease progression [Unknown]
  - Product use issue [Unknown]

NARRATIVE: CASE EVENT DATE: 2015
